FAERS Safety Report 5145441-2 (Version None)
Quarter: 2006Q4

REPORT INFORMATION
  Report Type: 
  Country: None (occurrence: None)
  Receive Date: 20061101
  Receipt Date: 20061027
  Transmission Date: 20070319
  Serious: Yes (Life-Threatening, Hospitalization)
  Sender: FDA-Public Use
  Company Number: NLWYE252517OCT06

PATIENT
  Age: 53 Year
  Sex: Female

DRUGS (1)
  1. EFFEXOR XR [Suspect]
     Indication: DEPRESSION
     Dosage: 40-50 CAPSULES OF 150 MG ORAL
     Route: 048
     Dates: start: 20061013, end: 20061013

REACTIONS (10)
  - AMNESIA [None]
  - APHASIA [None]
  - DEAFNESS [None]
  - DYSSTASIA [None]
  - EYE ROLLING [None]
  - INTENTIONAL OVERDOSE [None]
  - NAUSEA [None]
  - SUICIDE ATTEMPT [None]
  - URINARY INCONTINENCE [None]
  - VOMITING [None]
